FAERS Safety Report 5196903-3 (Version None)
Quarter: 2007Q1

REPORT INFORMATION
  Report Type: 
  Country: None (occurrence: None)
  Receive Date: 20070103
  Receipt Date: 20061225
  Transmission Date: 20070707
  Serious: Yes (Life-Threatening)
  Sender: FDA-Public Use
  Company Number: PHBS2006JP19885

PATIENT

DRUGS (1)
  1. NEORAL [Suspect]
     Indication: PLATELET COUNT DECREASED
     Dosage: 300 MG/DAY
     Route: 048
     Dates: start: 20060101

REACTIONS (2)
  - ARRHYTHMIA [None]
  - CARDIO-RESPIRATORY ARREST [None]
